APPROVED DRUG PRODUCT: METFORMIN HYDROCHLORIDE
Active Ingredient: METFORMIN HYDROCHLORIDE
Strength: 750MG
Dosage Form/Route: TABLET;ORAL
Application: A075972 | Product #004 | TE Code: AB
Applicant: CHARTWELL SCHEDULED LLC
Approved: Jan 24, 2002 | RLD: No | RS: No | Type: RX